FAERS Safety Report 18846455 (Version 1)
Quarter: 2021Q1

REPORT INFORMATION
  Report Type: Spontaneous
  Country: FR (occurrence: FR)
  Receive Date: 20210204
  Receipt Date: 20210204
  Transmission Date: 20210419
  Serious: Yes (Other)
  Sender: FDA-Public Use
  Company Number: FR-ROCHE-2725546

PATIENT
  Age: 53 Year
  Sex: Female
  Weight: 48 kg

DRUGS (2)
  1. ROACTEMRA [Suspect]
     Active Substance: TOCILIZUMAB
     Indication: RHEUMATOID ARTHRITIS
     Route: 042
     Dates: start: 20200608, end: 20201005
  2. METHOTREXATE. [Concomitant]
     Active Substance: METHOTREXATE
     Indication: RHEUMATOID ARTHRITIS

REACTIONS (3)
  - Hypoglycaemia [Recovered/Resolved]
  - Hypotension [Recovered/Resolved]
  - Anaphylactic reaction [Recovered/Resolved]

NARRATIVE: CASE EVENT DATE: 20201015
